FAERS Safety Report 7133419-9 (Version None)
Quarter: 2010Q4

REPORT INFORMATION
  Report Type: 
  Country: None (occurrence: None)
  Receive Date: 20101202
  Receipt Date: 20101122
  Transmission Date: 20110411
  Serious: Yes (Other)
  Sender: FDA-Public Use
  Company Number: US-WATSON-2010-15297

PATIENT
  Sex: Male

DRUGS (2)
  1. METOCLOPRAMIDE HYDROCHLORIDE [Suspect]
     Indication: PRODUCT USED FOR UNKNOWN INDICATION
     Dosage: UNK
     Route: 048
     Dates: start: 20010301, end: 20050101
  2. REGLAN [Suspect]
     Indication: PRODUCT USED FOR UNKNOWN INDICATION
     Dosage: UNK
     Route: 048
     Dates: start: 20010301, end: 20050101

REACTIONS (7)
  - DISTURBANCE IN ATTENTION [None]
  - DYSKINESIA [None]
  - INCORRECT DRUG ADMINISTRATION DURATION [None]
  - NEUROLEPTIC MALIGNANT SYNDROME [None]
  - SOLILOQUY [None]
  - STARING [None]
  - TARDIVE DYSKINESIA [None]
